FAERS Safety Report 17233277 (Version 5)
Quarter: 2020Q1

REPORT INFORMATION
  Report Type: Spontaneous
  Country: IT (occurrence: IT)
  Receive Date: 20200104
  Receipt Date: 20200207
  Transmission Date: 20200409
  Serious: Yes (Hospitalization, Other)
  Sender: FDA-Public Use
  Company Number: IT-AUROBINDO-AUR-APL-2019-108234

PATIENT
  Age: 75 Year
  Sex: Male

DRUGS (9)
  1. FOSCARNET [Suspect]
     Active Substance: FOSCARNET
     Indication: CYTOMEGALOVIRUS INFECTION
     Dosage: 150 MILLIGRAM/KILOGRAM, ONCE A DAY
     Route: 065
     Dates: start: 20171003, end: 20171016
  2. BENDAMUSTINE [Suspect]
     Active Substance: BENDAMUSTINE
     Indication: WALDENSTROM^S MACROGLOBULINAEMIA
     Dosage: UNK
     Route: 065
  3. BENDAMUSTINE [Suspect]
     Active Substance: BENDAMUSTINE
     Indication: BONE MARROW INFILTRATION
  4. GANCICLOVIR. [Suspect]
     Active Substance: GANCICLOVIR
     Indication: CYTOMEGALOVIRUS INFECTION
     Dosage: 5 MILLIGRAM/KILOGRAM, TWO TIMES A DAY (INDUCTION TREATMENT)
     Route: 065
     Dates: start: 20170918, end: 20170929
  5. LEVETIRACETAM. [Suspect]
     Active Substance: LEVETIRACETAM
     Indication: PRODUCT USED FOR UNKNOWN INDICATION
     Dosage: UNK
     Route: 065
  6. VALGANCICLOVIR. [Suspect]
     Active Substance: VALGANCICLOVIR
     Dosage: 450 MILLIGRAM, ONCE A DAY
     Route: 065
     Dates: start: 20171106, end: 20171112
  7. BENDAMUSTINE [Suspect]
     Active Substance: BENDAMUSTINE
     Indication: LYMPHOPLASMACYTOID LYMPHOMA/IMMUNOCYTOMA
     Dosage: UNK, CYCLICAL (6)
     Route: 065
  8. RITUXIMAB. [Suspect]
     Active Substance: RITUXIMAB
     Indication: LYMPHOPLASMACYTOID LYMPHOMA/IMMUNOCYTOMA
     Dosage: UNK
     Route: 065
  9. VALGANCICLOVIR. [Suspect]
     Active Substance: VALGANCICLOVIR
     Indication: CYTOMEGALOVIRUS INFECTION
     Dosage: 900 MILLIGRAM, ONCE A DAY
     Route: 065
     Dates: start: 20171021, end: 20171028

REACTIONS (16)
  - Electrolyte imbalance [Unknown]
  - Hallucination, visual [Recovered/Resolved]
  - Cytomegalovirus chorioretinitis [Recovered/Resolved]
  - Hallucination [Recovered/Resolved]
  - Disseminated cytomegaloviral infection [Recovered/Resolved]
  - Encephalitis cytomegalovirus [Recovered/Resolved]
  - Neutropenia [Unknown]
  - Renal impairment [Unknown]
  - Retinitis [Recovered/Resolved]
  - Cytomegalovirus colitis [Recovered/Resolved]
  - Colitis [Recovered/Resolved]
  - Cytomegalovirus gastritis [Recovered/Resolved]
  - Cytomegalovirus infection [Recovered/Resolved]
  - Lymphopenia [Not Recovered/Not Resolved]
  - Encephalitis [Recovered/Resolved]
  - Gastritis [Recovered/Resolved]
